FAERS Safety Report 19936281 (Version 1)
Quarter: 2021Q4

REPORT INFORMATION
  Report Type: Spontaneous
  Country: US (occurrence: US)
  Receive Date: 20211008
  Receipt Date: 20211008
  Transmission Date: 20220303
  Serious: No
  Sender: FDA-Public Use
  Company Number: US-SA-SAC20211007000116

PATIENT
  Age: 48 Year
  Sex: Female

DRUGS (22)
  1. ALLEGRA [Suspect]
     Active Substance: FEXOFENADINE HYDROCHLORIDE
     Indication: Paraesthesia
     Dosage: UNK
     Route: 065
  2. ALLEGRA [Suspect]
     Active Substance: FEXOFENADINE HYDROCHLORIDE
     Indication: Angioedema
  3. ALLEGRA [Suspect]
     Active Substance: FEXOFENADINE HYDROCHLORIDE
     Indication: Pharyngeal swelling
  4. ALLEGRA [Suspect]
     Active Substance: FEXOFENADINE HYDROCHLORIDE
     Indication: Swollen tongue
  5. CETIRIZINE HYDROCHLORIDE [Suspect]
     Active Substance: CETIRIZINE HYDROCHLORIDE
     Indication: Paraesthesia
     Dosage: UNK
     Route: 065
  6. CETIRIZINE HYDROCHLORIDE [Suspect]
     Active Substance: CETIRIZINE HYDROCHLORIDE
     Indication: Angioedema
  7. CETIRIZINE HYDROCHLORIDE [Suspect]
     Active Substance: CETIRIZINE HYDROCHLORIDE
     Indication: Pharyngeal swelling
  8. CETIRIZINE HYDROCHLORIDE [Suspect]
     Active Substance: CETIRIZINE HYDROCHLORIDE
     Indication: Swollen tongue
  9. FAMOTIDINE [Suspect]
     Active Substance: FAMOTIDINE
     Dosage: UNK
     Route: 065
  10. PREDNISONE [Suspect]
     Active Substance: PREDNISONE
     Indication: Pharyngeal swelling
     Dosage: UNK
     Route: 065
  11. PREDNISONE [Suspect]
     Active Substance: PREDNISONE
     Indication: Swollen tongue
  12. PREDNISONE [Suspect]
     Active Substance: PREDNISONE
     Indication: Paraesthesia
  13. PREDNISONE [Suspect]
     Active Substance: PREDNISONE
     Indication: Angioedema
  14. LORATADINE [Suspect]
     Active Substance: LORATADINE
     Indication: Paraesthesia
     Dosage: UNK
     Route: 065
  15. LORATADINE [Suspect]
     Active Substance: LORATADINE
     Indication: Swollen tongue
  16. LORATADINE [Suspect]
     Active Substance: LORATADINE
     Indication: Swollen tongue
  17. LORATADINE [Suspect]
     Active Substance: LORATADINE
     Indication: Angioedema
  18. XYZAL [Suspect]
     Active Substance: LEVOCETIRIZINE DIHYDROCHLORIDE
     Indication: Angioedema
     Dosage: UNK
     Route: 065
  19. XYZAL [Suspect]
     Active Substance: LEVOCETIRIZINE DIHYDROCHLORIDE
     Indication: Pharyngeal swelling
  20. XYZAL [Suspect]
     Active Substance: LEVOCETIRIZINE DIHYDROCHLORIDE
     Indication: Swollen tongue
  21. XYZAL [Suspect]
     Active Substance: LEVOCETIRIZINE DIHYDROCHLORIDE
     Indication: Paraesthesia
  22. ACETAMINOPHEN [Suspect]
     Active Substance: ACETAMINOPHEN
     Indication: Injection site pain
     Dosage: UNK
     Route: 065

REACTIONS (6)
  - Paraesthesia [Unknown]
  - Condition aggravated [Unknown]
  - Headache [Unknown]
  - Adverse drug reaction [Unknown]
  - Therapeutic product effect variable [Unknown]
  - Drug ineffective [Unknown]
